FAERS Safety Report 17632166 (Version 7)
Quarter: 2022Q2

REPORT INFORMATION
  Report Type: Report from Study
  Country: IL (occurrence: IL)
  Receive Date: 20200406
  Receipt Date: 20220417
  Transmission Date: 20220721
  Serious: Yes (Hospitalization, Other)
  Sender: FDA-Public Use
  Company Number: IL-ABBVIE-20K-082-3352685-00

PATIENT
  Age: 70 Year
  Sex: Male
  Weight: 73 kg

DRUGS (60)
  1. VENETOCLAX [Suspect]
     Active Substance: VENETOCLAX
     Indication: Acute myeloid leukaemia
     Dosage: RAMP UP
     Route: 048
     Dates: start: 20200315, end: 20200315
  2. VENETOCLAX [Suspect]
     Active Substance: VENETOCLAX
     Dosage: RAMP UP
     Route: 048
     Dates: start: 20200316, end: 20200316
  3. VENETOCLAX [Suspect]
     Active Substance: VENETOCLAX
     Dosage: MODIFICATION TO THE DAILY DOSE?RAMP UP
     Route: 048
     Dates: start: 20200317, end: 20200317
  4. VENETOCLAX [Suspect]
     Active Substance: VENETOCLAX
     Dosage: DOSE REDUCTION
     Route: 048
     Dates: start: 20200318, end: 20200318
  5. VENETOCLAX [Suspect]
     Active Substance: VENETOCLAX
     Route: 048
     Dates: start: 20200419, end: 20200510
  6. VENETOCLAX [Suspect]
     Active Substance: VENETOCLAX
     Dosage: INTERRUPTION COUNT RECOVERY (ANC, PLATELETS OR HEMOGLOBIN)
     Route: 048
     Dates: start: 20200524, end: 20200606
  7. VENETOCLAX [Suspect]
     Active Substance: VENETOCLAX
     Dosage: INTERRUPTION COUNT RECOVERY (ANC, PLATELETS OR HEMOGLOBIN)
     Route: 048
     Dates: start: 20200719, end: 20200801
  8. VENETOCLAX [Suspect]
     Active Substance: VENETOCLAX
     Dosage: INTERRUPTION COUNT RECOVERY (ANC, PLATELETS OR HEMOGLOBIN)
     Route: 048
     Dates: start: 20201011, end: 20201017
  9. VENETOCLAX [Suspect]
     Active Substance: VENETOCLAX
     Dosage: INTERRUPTION COUNT RECOVERY (ANC, PLATELETS OR HEMOGLOBIN)
     Route: 048
     Dates: start: 20210124, end: 20210130
  10. VENETOCLAX [Suspect]
     Active Substance: VENETOCLAX
     Dosage: INTERRUPTION COUNT RECOVERY (ANC, PLATELETS OR HEMOGLOBIN)
     Route: 048
     Dates: start: 20210307, end: 20210313
  11. VENETOCLAX [Suspect]
     Active Substance: VENETOCLAX
     Dosage: INTERRUPTION COUNT RECOVERY (ANC, PLATELETS OR HEMOGLOBIN)
     Route: 048
     Dates: start: 20210418, end: 20210424
  12. VENETOCLAX [Suspect]
     Active Substance: VENETOCLAX
     Dosage: INTERRUPTION COUNT RECOVERY (ANC, PLATELETS OR HEMOGLOBIN)
     Route: 048
     Dates: start: 20210530, end: 20210605
  13. VENETOCLAX [Suspect]
     Active Substance: VENETOCLAX
     Dosage: INTERRUPTION COUNT RECOVERY (ANC, PLATELETS OR HEMOGLOBIN)
     Route: 048
     Dates: start: 20210711, end: 20210717
  14. VENETOCLAX [Suspect]
     Active Substance: VENETOCLAX
     Dosage: INTERRUPTION COUNT RECOVERY (ANC, PLATELETS OR HEMOGLOBIN)
     Route: 048
     Dates: start: 20210829, end: 20210904
  15. VENETOCLAX [Suspect]
     Active Substance: VENETOCLAX
     Dosage: INTERRUPTION COUNT RECOVERY (ANC, PLATELETS OR HEMOGLOBIN)
     Route: 048
     Dates: start: 20211017, end: 20211023
  16. VENETOCLAX [Suspect]
     Active Substance: VENETOCLAX
     Dosage: INTERRUPTION COUNT RECOVERY (ANC, PLATELETS OR HEMOGLOBIN)
     Route: 048
     Dates: start: 20211205, end: 20211211
  17. VENETOCLAX [Suspect]
     Active Substance: VENETOCLAX
     Dosage: INTERRUPTION COUNT RECOVERY (ANC, PLATELETS OR HEMOGLOBIN)
     Route: 048
     Dates: start: 20220116, end: 20220122
  18. VENETOCLAX [Suspect]
     Active Substance: VENETOCLAX
     Dosage: INTERRUPTION COUNT RECOVERY (ANC, PLATELETS OR HEMOGLOBIN)
     Route: 048
     Dates: start: 20220227, end: 20220305
  19. AZACITIDINE [Suspect]
     Active Substance: AZACITIDINE
     Indication: Acute myeloid leukaemia
     Dosage: CYCLE 1
     Route: 058
     Dates: start: 20200315, end: 20200321
  20. AZACITIDINE [Suspect]
     Active Substance: AZACITIDINE
     Dosage: CYCLE 3-NO DOSE MODIFICATION/INTERRUPTION
     Route: 058
     Dates: start: 20200524, end: 20200601
  21. AZACITIDINE [Suspect]
     Active Substance: AZACITIDINE
     Dosage: CYCLE 4
     Route: 058
     Dates: start: 20200719, end: 20200723
  22. AZACITIDINE [Suspect]
     Active Substance: AZACITIDINE
     Dosage: CYCLE 5
     Route: 058
     Dates: start: 20201011, end: 20201015
  23. AZACITIDINE [Suspect]
     Active Substance: AZACITIDINE
     Dosage: CYCLE 6
     Route: 058
     Dates: start: 20201213, end: 20201217
  24. AZACITIDINE [Suspect]
     Active Substance: AZACITIDINE
     Dosage: CYCLE 7
     Route: 058
     Dates: start: 20210124, end: 20210128
  25. AZACITIDINE [Suspect]
     Active Substance: AZACITIDINE
     Dosage: CYCLE 8
     Route: 058
     Dates: start: 20210307, end: 20210311
  26. AZACITIDINE [Suspect]
     Active Substance: AZACITIDINE
     Dosage: CYCLE 9
     Route: 058
     Dates: start: 20210418, end: 20210422
  27. AZACITIDINE [Suspect]
     Active Substance: AZACITIDINE
     Dosage: CYCLE 10
     Route: 058
     Dates: start: 20210530, end: 20210603
  28. AZACITIDINE [Suspect]
     Active Substance: AZACITIDINE
     Dosage: CYCLE 11
     Route: 058
     Dates: start: 20210718, end: 20210722
  29. AZACITIDINE [Suspect]
     Active Substance: AZACITIDINE
     Dosage: CYCLE 12
     Route: 058
     Dates: start: 20210829, end: 20210902
  30. AZACITIDINE [Suspect]
     Active Substance: AZACITIDINE
     Dosage: CYCLE 13
     Route: 058
     Dates: start: 20211017, end: 20211021
  31. AZACITIDINE [Suspect]
     Active Substance: AZACITIDINE
     Dosage: CYCLE 14
     Route: 058
     Dates: start: 20211205, end: 20211209
  32. AZACITIDINE [Suspect]
     Active Substance: AZACITIDINE
     Dosage: CYCLE 15
     Route: 058
     Dates: start: 20220116, end: 20220120
  33. AZACITIDINE [Suspect]
     Active Substance: AZACITIDINE
     Dosage: CYCLE 16
     Route: 058
     Dates: start: 20220227, end: 20220303
  34. ASPIRIN [Concomitant]
     Active Substance: ASPIRIN
     Indication: Prophylaxis
     Dates: end: 20200403
  35. ASPIRIN [Concomitant]
     Active Substance: ASPIRIN
     Indication: Cardiac disorder
     Dates: start: 20200406
  36. ISOSORBIDE MONONITRATE [Concomitant]
     Active Substance: ISOSORBIDE MONONITRATE
     Indication: Cardiac disorder
  37. ISOSORBIDE MONONITRATE [Concomitant]
     Active Substance: ISOSORBIDE MONONITRATE
     Indication: Prophylaxis
  38. ATENOLOL [Concomitant]
     Active Substance: ATENOLOL
     Indication: Hypertension
  39. SIMVASTATIN [Concomitant]
     Active Substance: SIMVASTATIN
     Indication: Hyperlipidaemia
     Dates: start: 20201221
  40. SIMVASTATIN [Concomitant]
     Active Substance: SIMVASTATIN
     Indication: Blood cholesterol increased
  41. ALLOPURINOL [Concomitant]
     Active Substance: ALLOPURINOL
     Indication: Prophylaxis
     Dates: start: 20200313
  42. FLUCONAZOLE [Concomitant]
     Active Substance: FLUCONAZOLE
     Indication: Antifungal prophylaxis
     Dates: start: 20200318, end: 20200403
  43. FLUCONAZOLE [Concomitant]
     Active Substance: FLUCONAZOLE
     Dates: start: 20200406, end: 20200419
  44. CIPRODEX [Concomitant]
     Active Substance: CIPROFLOXACIN HYDROCHLORIDE\DEXAMETHASONE
     Indication: Infection prophylaxis
     Dates: start: 20200318, end: 20200403
  45. AVILAC [Concomitant]
     Indication: Constipation
     Dates: start: 20200314, end: 20200314
  46. ZOFRAN [Concomitant]
     Active Substance: ONDANSETRON HYDROCHLORIDE
     Indication: Prophylaxis
     Dates: start: 20200516, end: 202005
  47. ZOFRAN [Concomitant]
     Active Substance: ONDANSETRON HYDROCHLORIDE
     Dosage: 3
     Dates: start: 20200524, end: 20200531
  48. ZOFRAN [Concomitant]
     Active Substance: ONDANSETRON HYDROCHLORIDE
     Dosage: 0
     Dates: start: 20200601, end: 20200601
  49. ZOFRAN [Concomitant]
     Active Substance: ONDANSETRON HYDROCHLORIDE
     Dates: start: 20200719, end: 20200723
  50. ZOFRAN [Concomitant]
     Active Substance: ONDANSETRON HYDROCHLORIDE
     Dates: start: 20201012, end: 20201015
  51. ZOFRAN [Concomitant]
     Active Substance: ONDANSETRON HYDROCHLORIDE
     Dates: start: 20201213, end: 20201217
  52. ZOFRAN [Concomitant]
     Active Substance: ONDANSETRON HYDROCHLORIDE
     Dates: start: 20210124, end: 20210128
  53. ZOFRAN [Concomitant]
     Active Substance: ONDANSETRON HYDROCHLORIDE
     Dates: start: 20210307, end: 20210311
  54. ZOFRAN [Concomitant]
     Active Substance: ONDANSETRON HYDROCHLORIDE
     Dates: start: 20210418, end: 20210422
  55. ZOFRAN [Concomitant]
     Active Substance: ONDANSETRON HYDROCHLORIDE
     Dates: start: 20210530, end: 20210603
  56. ZOFRAN [Concomitant]
     Active Substance: ONDANSETRON HYDROCHLORIDE
     Dates: start: 20210718, end: 20210722
  57. ZOFRAN [Concomitant]
     Active Substance: ONDANSETRON HYDROCHLORIDE
     Dates: start: 20210829, end: 20210902
  58. ZOFRAN [Concomitant]
     Active Substance: ONDANSETRON HYDROCHLORIDE
     Dates: start: 20211017, end: 20211020
  59. COVID-19 VACCINE [Concomitant]
     Indication: COVID-19 immunisation
     Route: 023
     Dates: start: 20201226, end: 20201226
  60. COVID-19 VACCINE [Concomitant]
     Route: 023
     Dates: start: 20210116, end: 20210116

REACTIONS (20)
  - Phlebitis [Not Recovered/Not Resolved]
  - Chest pain [Recovered/Resolved]
  - Neutropenia [Recovered/Resolved]
  - Infusion site reaction [Recovering/Resolving]
  - Back pain [Recovered/Resolved]
  - Hypophosphataemia [Recovered/Resolved]
  - Nausea [Recovered/Resolved]
  - Neutrophil count decreased [Recovered/Resolved]
  - Neutrophil count decreased [Recovered/Resolved]
  - Platelet count decreased [Not Recovered/Not Resolved]
  - Thrombocytopenia [Recovered/Resolved]
  - Cytopenia [Recovered/Resolved]
  - Neutropenia [Recovered/Resolved]
  - Thrombocytopenia [Recovered/Resolved]
  - Thrombocytopenia [Recovered/Resolved]
  - Thrombocytopenia [Recovered/Resolved]
  - Neutropenia [Recovered/Resolved]
  - Thrombocytopenia [Recovered/Resolved]
  - Neutropenia [Recovered/Resolved]
  - Cytopenia [Recovered/Resolved]

NARRATIVE: CASE EVENT DATE: 20200315
